FAERS Safety Report 18638579 (Version 2)
Quarter: 2022Q3

REPORT INFORMATION
  Report Type: Spontaneous
  Country: JP (occurrence: JP)
  Receive Date: 20201218
  Receipt Date: 20220902
  Transmission Date: 20221027
  Serious: Yes (Other)
  Sender: FDA-Public Use
  Company Number: JP-ELI_LILLY_AND_COMPANY-JP202012006180

PATIENT
  Age: 24 Year
  Sex: Female
  Weight: 51 kg

DRUGS (19)
  1. ADCIRCA [Suspect]
     Active Substance: TADALAFIL
     Indication: Pulmonary arterial hypertension
     Dosage: UNK, UNKNOWN
     Route: 048
  2. ADCIRCA [Suspect]
     Active Substance: TADALAFIL
     Indication: Pulmonary arterial hypertension
  3. UPTRAVI [Suspect]
     Active Substance: SELEXIPAG
     Indication: Pulmonary arterial hypertension
     Dosage: 0.4 MG, DAILY
     Route: 048
     Dates: start: 20190417
  4. UPTRAVI [Suspect]
     Active Substance: SELEXIPAG
     Indication: Pulmonary arterial hypertension
     Dosage: 0.2 MG, DAILY
     Route: 048
  5. OPSUMIT [Suspect]
     Active Substance: MACITENTAN
     Indication: Pulmonary arterial hypertension
     Dosage: UNK, UNKNOWN
     Route: 048
  6. OPSUMIT [Suspect]
     Active Substance: MACITENTAN
     Indication: Pulmonary arterial hypertension
  7. EPOPROSTENOL [Suspect]
     Active Substance: EPOPROSTENOL
     Indication: Pulmonary arterial hypertension
     Dosage: UNK, UNKNOWN
     Route: 042
  8. EPOPROSTENOL [Suspect]
     Active Substance: EPOPROSTENOL
     Indication: Pulmonary arterial hypertension
  9. EDOXABAN TOSYLATE [Suspect]
     Active Substance: EDOXABAN TOSYLATE
     Indication: Venous thrombosis
     Dosage: 30 MG, DAILY
     Route: 048
  10. SPIRONOLACTONE [Suspect]
     Active Substance: SPIRONOLACTONE
     Indication: Cardiac failure
     Dosage: 25 MG, DAILY
     Route: 048
  11. AZOSEMIDE [Suspect]
     Active Substance: AZOSEMIDE
     Indication: Cardiac failure
     Dosage: UNK, UNKNOWN
     Route: 048
  12. AZOSEMIDE [Suspect]
     Active Substance: AZOSEMIDE
     Dosage: 15 MG, DAILY
     Route: 048
  13. FEBUXOSTAT [Suspect]
     Active Substance: FEBUXOSTAT
     Indication: Hyperuricaemia
     Dosage: 10 MG, DAILY
     Route: 048
  14. LANSOPRAZOLE [Concomitant]
     Active Substance: LANSOPRAZOLE
     Indication: Product used for unknown indication
     Dosage: 15 MG
     Dates: end: 20190507
  15. CARBOCYSTEINE [Concomitant]
     Active Substance: CARBOCYSTEINE
     Indication: Bronchitis
     Dosage: 1500 MG
     Dates: end: 20190425
  16. DEXTROMETHORPHAN HYDROBROMIDE\LYSOZYME HYDROCHLORIDE\POTASSIUM CRESOLS [Concomitant]
     Active Substance: DEXTROMETHORPHAN HYDROBROMIDE\LYSOZYME HYDROCHLORIDE\POTASSIUM CRESOLSULFONATE
     Indication: Bronchitis
     Dosage: 45 MG
     Dates: end: 20190425
  17. POTASSIUM CHLORIDE [Concomitant]
     Active Substance: POTASSIUM CHLORIDE
     Indication: Hypokalaemia
     Dosage: 1200 MG
     Dates: start: 20190507, end: 20201001
  18. SODIUM FERROUS CITRATE [Concomitant]
     Active Substance: SODIUM FERROUS CITRATE
     Indication: Anaemia
     Dosage: 100 MG
     Dates: start: 20190703, end: 20200807
  19. COCARL [Concomitant]
     Active Substance: ACETAMINOPHEN
     Indication: Headache
     Dosage: UNK
     Dates: start: 20190927, end: 20191219

REACTIONS (13)
  - Platelet count decreased [Recovering/Resolving]
  - Abdominal distension [Recovered/Resolved]
  - Pulmonary hypertension [Unknown]
  - Abdominal pain [Recovered/Resolved]
  - Dyspnoea [Unknown]
  - Platelet count decreased [Recovering/Resolving]
  - Exposure during pregnancy [Unknown]
  - Liver disorder [Recovered/Resolved]
  - Liver disorder [Recovered/Resolved]
  - Diarrhoea [Recovering/Resolving]
  - Headache [Recovering/Resolving]
  - Palpitations [Recovered/Resolved]
  - Chest pain [Recovered/Resolved]

NARRATIVE: CASE EVENT DATE: 20190301
